FAERS Safety Report 6765266-1 (Version None)
Quarter: 2010Q2

REPORT INFORMATION
  Report Type: 
  Country: None (occurrence: None)
  Receive Date: 20100611
  Receipt Date: 20100602
  Transmission Date: 20101027
  Serious: Yes (Hospitalization)
  Sender: FDA-Public Use
  Company Number: JP-ELI_LILLY_AND_COMPANY-JP201006000868

PATIENT
  Age: 62 Year
  Sex: Male
  Weight: 54.4 kg

DRUGS (13)
  1. PEMETREXED [Suspect]
     Indication: LARGE CELL LUNG CANCER STAGE IV
     Dosage: 500 MG/M2, OTHER
     Route: 042
     Dates: start: 20091021, end: 20100205
  2. PEMETREXED [Suspect]
     Dosage: 800 MG, OTHER
     Route: 042
     Dates: start: 20100301, end: 20100324
  3. CARBOPLATIN [Concomitant]
     Indication: LARGE CELL LUNG CANCER STAGE IV
     Dosage: AUC5
     Route: 042
     Dates: start: 20091021, end: 20100205
  4. DECADRON /00016002/ [Concomitant]
     Indication: ANTIEMETIC SUPPORTIVE CARE
     Route: 042
     Dates: start: 20091021, end: 20100324
  5. PANVITAN [Concomitant]
     Indication: PROPHYLAXIS
     Dosage: 1 G (0.5 MG AS FOLIC ACID), DAILY (1/D)
     Route: 048
     Dates: start: 20091021, end: 20100413
  6. HYDROXYAMFETAMINE [Concomitant]
     Indication: PROPHYLAXIS
     Dosage: 1 MG, UNK
     Route: 030
     Dates: start: 20091021, end: 20100301
  7. KYTRIL /01178102/ [Concomitant]
     Indication: ANTIEMETIC SUPPORTIVE CARE
     Route: 042
     Dates: start: 20091021, end: 20100205
  8. LOXONIN [Concomitant]
     Indication: CANCER PAIN
     Route: 065
  9. KELNAC [Concomitant]
     Indication: PROPHYLAXIS
     Route: 048
  10. PURSENNID /00571901/ [Concomitant]
     Indication: CONSTIPATION
     Route: 048
  11. CELESTAMINE TAB [Concomitant]
     Indication: RASH
     Route: 048
     Dates: start: 20091026, end: 20091101
  12. CELESTAMINE TAB [Concomitant]
     Route: 048
     Dates: start: 20091112, end: 20100110
  13. DERMOSOL [Concomitant]
     Indication: RASH
     Route: 062
     Dates: start: 20091026

REACTIONS (2)
  - DUODENAL ULCER HAEMORRHAGE [None]
  - GASTRIC ULCER HAEMORRHAGE [None]
